FAERS Safety Report 14002835 (Version 1)
Quarter: 2017Q3

REPORT INFORMATION
  Report Type: Spontaneous
  Country: US (occurrence: US)
  Receive Date: 20170922
  Receipt Date: 20170922
  Transmission Date: 20171128
  Serious: No
  Sender: FDA-Public Use
  Company Number: US-AMGEN-USASP2017068693

PATIENT
  Age: 14 Year
  Sex: Male

DRUGS (1)
  1. NEUPOGEN [Suspect]
     Active Substance: FILGRASTIM
     Indication: RHABDOMYOSARCOMA
     Dosage: 300 MUG, QD
     Route: 065
     Dates: start: 201610

REACTIONS (4)
  - Accidental exposure to product [Unknown]
  - Myalgia [Unknown]
  - Bone pain [Unknown]
  - Wrong technique in product usage process [Unknown]
